FAERS Safety Report 4689778-X (Version None)
Quarter: 2005Q2

REPORT INFORMATION
  Report Type: 
  Country: None (occurrence: None)
  Receive Date: 20050614
  Receipt Date: 20050511
  Transmission Date: 20051028
  Serious: Yes (Hospitalization)
  Sender: FDA-Public Use
  Company Number: FR-BRISTOL-MYERS SQUIBB COMPANY-12970851

PATIENT
  Age: 25 Year
  Sex: Female
  Weight: 50 kg

DRUGS (10)
  1. ENDOXAN [Suspect]
     Indication: SYSTEMIC LUPUS ERYTHEMATOSUS
     Route: 042
     Dates: start: 20050310, end: 20050310
  2. CORTANCYL [Suspect]
     Indication: SYSTEMIC LUPUS ERYTHEMATOSUS
     Route: 048
     Dates: start: 20050211
  3. DEPAMIDE [Suspect]
     Indication: SYSTEMIC LUPUS ERYTHEMATOSUS
     Route: 048
     Dates: start: 20050211
  4. TERCIAN [Suspect]
     Indication: SYSTEMIC LUPUS ERYTHEMATOSUS
     Route: 048
     Dates: start: 20050211
  5. TRIATEC [Suspect]
     Indication: SYSTEMIC LUPUS ERYTHEMATOSUS
     Route: 048
     Dates: start: 20050211
  6. MEPRAL [Suspect]
     Indication: SYSTEMIC LUPUS ERYTHEMATOSUS
     Route: 048
     Dates: start: 20050211
  7. SOLU-MEDROL [Concomitant]
     Route: 040
     Dates: start: 20050211
  8. PLAQUENIL [Concomitant]
     Dates: end: 20050331
  9. NICARDIPINE HCL [Concomitant]
     Dates: end: 20050331
  10. TRANXENE [Concomitant]
     Dates: end: 20050331

REACTIONS (9)
  - CARDIOMYOPATHY [None]
  - HYPERTENSION [None]
  - HYPOVOLAEMIC SHOCK [None]
  - LEFT VENTRICULAR FAILURE [None]
  - OLIGURIA [None]
  - PELVIC PAIN [None]
  - PERICARDIAL EFFUSION [None]
  - PYREXIA [None]
  - VENTRICULAR HYPERTROPHY [None]
